FAERS Safety Report 22329118 (Version 1)
Quarter: 2023Q2

REPORT INFORMATION
  Report Type: Spontaneous
  Country: US (occurrence: None)
  Receive Date: 20230517
  Receipt Date: 20230517
  Transmission Date: 20230721
  Serious: Yes (Other)
  Sender: FDA-Public Use
  Company Number: US-ACS-20230128

PATIENT
  Age: 63 Year
  Sex: Male

DRUGS (6)
  1. CEFTRIAXONE [Suspect]
     Active Substance: CEFTRIAXONE
     Indication: Pneumonia
     Dosage: ()
     Dates: start: 20230325, end: 20230325
  2. CABOMETYX [Suspect]
     Active Substance: CABOZANTINIB S-MALATE
     Indication: Renal cancer
     Dosage: FOR 14 DAYS ON AND 7 DAYS OFF
     Route: 048
     Dates: start: 202206
  3. AZITHROMYCIN [Suspect]
     Active Substance: AZITHROMYCIN
     Indication: Pneumonia
     Dosage: ()
     Dates: start: 20230314, end: 20230320
  4. HEPARIN [Suspect]
     Active Substance: HEPARIN SODIUM
     Indication: Deep vein thrombosis
     Dosage: ()
     Route: 040
     Dates: start: 20230320, end: 20230320
  5. ASPIRIN [Concomitant]
     Active Substance: ASPIRIN
     Dosage: ASA-EC ()
     Dates: start: 202303
  6. LIDOCAINE [Concomitant]
     Active Substance: LIDOCAINE
     Indication: Pain
     Dosage: ()
     Dates: start: 202302

REACTIONS (1)
  - Toxic encephalopathy [Recovering/Resolving]

NARRATIVE: CASE EVENT DATE: 20230320
